FAERS Safety Report 24987681 (Version 2)
Quarter: 2025Q1

REPORT INFORMATION
  Report Type: Report from Study
  Country: US (occurrence: US)
  Receive Date: 20250219
  Receipt Date: 20250328
  Transmission Date: 20250409
  Serious: No
  Sender: SUNOVION
  Company Number: US-SUMITOMO PHARMA SWITZERLAND GMBH-2025SPA001088

PATIENT

DRUGS (9)
  1. ORGOVYX [Suspect]
     Active Substance: RELUGOLIX
     Indication: Prostate cancer
     Dosage: 360 MG, SINGLE
     Route: 048
     Dates: start: 20240104, end: 20240104
  2. ORGOVYX [Suspect]
     Active Substance: RELUGOLIX
     Dosage: 120 MG, QD
     Route: 048
     Dates: start: 20250105
  3. GARLIC OIL [Concomitant]
     Active Substance: GARLIC OIL
     Route: 065
  4. Tonalin cla [Concomitant]
     Route: 065
  5. VITAMIN B12 [Concomitant]
     Active Substance: CYANOCOBALAMIN
     Route: 065
  6. VITAMIN D3 [Concomitant]
     Active Substance: CHOLECALCIFEROL
     Route: 065
  7. ABIRATERONE ACETATE [Concomitant]
     Active Substance: ABIRATERONE ACETATE
     Route: 065
  8. PREDNISONE [Concomitant]
     Active Substance: PREDNISONE
     Route: 065
  9. GLUTAMINE [Concomitant]
     Active Substance: GLUTAMINE
     Route: 065

REACTIONS (7)
  - Pigmentation disorder [Unknown]
  - Muscle atrophy [Unknown]
  - Glycosylated haemoglobin increased [Unknown]
  - Libido decreased [Unknown]
  - Blood glucose increased [Unknown]
  - Hot flush [Unknown]
  - Blood triglycerides increased [Unknown]
